FAERS Safety Report 9306792 (Version 1)
Quarter: 2013Q2

REPORT INFORMATION
  Report Type: Spontaneous
  Country: TR (occurrence: TR)
  Receive Date: 20130523
  Receipt Date: 20130523
  Transmission Date: 20140414
  Serious: Yes (Death)
  Sender: FDA-Public Use
  Company Number: TR-BIOMARINAP-TR-2013-100830

PATIENT
  Age: 9 Year
  Sex: Male
  Weight: 21 kg

DRUGS (1)
  1. NAGLAZYME [Suspect]
     Indication: MUCOPOLYSACCHARIDOSIS VI
     Dosage: 20 MG, QW
     Route: 041
     Dates: start: 200905

REACTIONS (2)
  - Cardio-respiratory arrest [Fatal]
  - Pneumonia [Unknown]
